FAERS Safety Report 21119480 (Version 2)
Quarter: 2022Q3

REPORT INFORMATION
  Report Type: Spontaneous
  Country: TW (occurrence: TW)
  Receive Date: 20220722
  Receipt Date: 20220726
  Transmission Date: 20221027
  Serious: Yes (Hospitalization, Other)
  Sender: FDA-Public Use
  Company Number: TW-PFIZER INC-PV202200019144

PATIENT
  Age: 62 Year
  Sex: Male

DRUGS (20)
  1. LORAZEPAM [Suspect]
     Active Substance: LORAZEPAM
     Indication: Delusion of grandeur
     Dosage: DOSE UPTITRATION
  2. LORAZEPAM [Suspect]
     Active Substance: LORAZEPAM
     Indication: Delirium tremens
  3. LORAZEPAM [Suspect]
     Active Substance: LORAZEPAM
     Indication: Bipolar disorder
  4. LORAZEPAM [Suspect]
     Active Substance: LORAZEPAM
     Indication: Cognitive disorder
  5. LORAZEPAM [Suspect]
     Active Substance: LORAZEPAM
     Indication: Aggression
  6. VALPROIC ACID [Suspect]
     Active Substance: VALPROIC ACID
     Indication: Delusion of grandeur
     Dosage: UNK
  7. VALPROIC ACID [Suspect]
     Active Substance: VALPROIC ACID
     Indication: Bipolar disorder
  8. VALPROIC ACID [Suspect]
     Active Substance: VALPROIC ACID
     Indication: Delirium tremens
  9. VALPROIC ACID [Suspect]
     Active Substance: VALPROIC ACID
     Indication: Cognitive disorder
  10. VALPROIC ACID [Suspect]
     Active Substance: VALPROIC ACID
     Indication: Aggression
  11. ARIPIPRAZOLE [Suspect]
     Active Substance: ARIPIPRAZOLE
     Indication: Delusion of grandeur
     Dosage: UNK
  12. ARIPIPRAZOLE [Suspect]
     Active Substance: ARIPIPRAZOLE
     Indication: Bipolar disorder
  13. ARIPIPRAZOLE [Suspect]
     Active Substance: ARIPIPRAZOLE
     Indication: Delirium tremens
  14. ARIPIPRAZOLE [Suspect]
     Active Substance: ARIPIPRAZOLE
     Indication: Cognitive disorder
  15. ARIPIPRAZOLE [Suspect]
     Active Substance: ARIPIPRAZOLE
     Indication: Aggression
  16. ESTAZOLAM [Suspect]
     Active Substance: ESTAZOLAM
     Indication: Delusion of grandeur
     Dosage: DOSE UPTITRATION
  17. ESTAZOLAM [Suspect]
     Active Substance: ESTAZOLAM
     Indication: Bipolar disorder
  18. ESTAZOLAM [Suspect]
     Active Substance: ESTAZOLAM
     Indication: Delirium tremens
  19. ESTAZOLAM [Suspect]
     Active Substance: ESTAZOLAM
     Indication: Cognitive disorder
  20. ESTAZOLAM [Suspect]
     Active Substance: ESTAZOLAM
     Indication: Aggression

REACTIONS (10)
  - Pneumonia aspiration [Recovered/Resolved]
  - Disorientation [Recovered/Resolved]
  - Disturbance in attention [Recovered/Resolved]
  - Somnolence [Recovered/Resolved]
  - Pyrexia [Recovered/Resolved]
  - Hypopnoea [Recovered/Resolved]
  - Sedation [Unknown]
  - Extrapyramidal disorder [Unknown]
  - Delirium [Unknown]
  - Off label use [Unknown]
